FAERS Safety Report 7161823-1 (Version None)
Quarter: 2010Q4

REPORT INFORMATION
  Report Type: 
  Country: None (occurrence: None)
  Receive Date: 20101215
  Receipt Date: 20101208
  Transmission Date: 20110411
  Serious: Yes (Other)
  Sender: FDA-Public Use
  Company Number: US-AMGEN-USASP2010003825

PATIENT

DRUGS (12)
  1. NEUPOGEN [Suspect]
     Indication: IDIOPATHIC NEUTROPENIA
     Dosage: 300 A?G, 2 TIMES/WK
     Dates: start: 20100916, end: 20101022
  2. NAPROXEN [Concomitant]
     Dosage: UNK
  3. PERCOCET [Concomitant]
  4. LEXAPRO [Concomitant]
  5. MULTIVITAMIN                       /00097801/ [Concomitant]
  6. CALTRATE WITH VITAMIN D [Concomitant]
  7. M.V.I. [Concomitant]
  8. NEXIUM [Concomitant]
  9. HYDROCHLOROTHIAZIDE [Concomitant]
  10. AMBIEN [Concomitant]
  11. CELEXA [Concomitant]
  12. RECLAST [Concomitant]

REACTIONS (2)
  - ARTHRITIS [None]
  - HEADACHE [None]
